FAERS Safety Report 8798817 (Version 2)
Quarter: 2012Q4

REPORT INFORMATION
  Report Type: 
  Country: US (occurrence: US)
  Receive Date: 20120920
  Receipt Date: 20121004
  Transmission Date: 20130627
  Serious: Yes (Other)
  Sender: FDA-Public Use
  Company Number: US-GILEAD-2012-0061483

PATIENT
  Sex: Female

DRUGS (2)
  1. LETAIRIS [Suspect]
     Indication: PULMONARY ARTERIAL HYPERTENSION
     Dosage: 10 mg, UNK
     Route: 048
     Dates: start: 20120719
  2. ADCIRCA [Concomitant]

REACTIONS (5)
  - Aphonia [Unknown]
  - Hypotension [Unknown]
  - Face oedema [Unknown]
  - Oropharyngeal pain [Unknown]
  - Oedema peripheral [Unknown]
